FAERS Safety Report 4487355-7 (Version None)
Quarter: 2004Q4

REPORT INFORMATION
  Report Type: 
  Country: None (occurrence: None)
  Receive Date: 20041022
  Receipt Date: 20041008
  Transmission Date: 20050328
  Serious: Yes (Death, Hospitalization)
  Sender: FDA-Public Use
  Company Number: SGB1-2004-00332

PATIENT
  Age: 71 Year
  Sex: Female
  Weight: 46 kg

DRUGS (11)
  1. XAGRID(ANAGRELIDE HYDROCHLORIDE) CAPSULE [Suspect]
     Indication: ESSENTIAL THROMBOCYTHAEMIA
     Dosage: SEE IMAGE
     Route: 048
     Dates: start: 20030623, end: 20040808
  2. XAGRID(ANAGRELIDE HYDROCHLORIDE) CAPSULE [Suspect]
     Indication: ESSENTIAL THROMBOCYTHAEMIA
     Dosage: SEE IMAGE
     Route: 048
     Dates: start: 20040808, end: 20040908
  3. CITALOPRAM HYDROBROMIDE [Concomitant]
  4. LEPTICUR (TROPATEPINE HYDROCHLORIDE) [Concomitant]
  5. LOXAPINE SUCCINATE [Concomitant]
  6. VALIUM [Concomitant]
  7. BISOPROLOL FUMARATE [Concomitant]
  8. OMEPRAZOLE [Concomitant]
  9. VASOBRAL (CAFFEINE, DIHYDROEROCRYPTINE MESILATE) [Concomitant]
  10. PHOSPHO-SODA (SODIUM PHOSPHATE, SODIUM PHOSPHATE DIBASIC) [Concomitant]
  11. FORTUM (CEFTAZIDIME PENTAHYDRATE) [Concomitant]

REACTIONS (4)
  - CARDIAC PERFORATION [None]
  - GASTROINTESTINAL HAEMORRHAGE [None]
  - HYPERPHOSPHATAEMIA [None]
  - MYOCARDIAL INFARCTION [None]
